FAERS Safety Report 9269991 (Version 1)
Quarter: 2013Q2

REPORT INFORMATION
  Report Type: Spontaneous
  Country: TR (occurrence: TR)
  Receive Date: 20130503
  Receipt Date: 20130503
  Transmission Date: 20140414
  Serious: Yes (Other)
  Sender: FDA-Public Use
  Company Number: TR-PFIZER INC-2013132625

PATIENT
  Age: 35 Year
  Sex: Female

DRUGS (3)
  1. RIFAMPICIN [Suspect]
     Indication: BRUCELLOSIS
     Dosage: 600 MG, 1X/DAY
  2. DOXYCYCLINE [Concomitant]
     Indication: BRUCELLOSIS
     Dosage: 200 MG, DAILY
  3. CIPROFLOXACIN [Concomitant]
     Indication: BRUCELLOSIS
     Dosage: UNK

REACTIONS (2)
  - Thrombocytopenia [Recovered/Resolved]
  - Epistaxis [Unknown]
